FAERS Safety Report 19729668 (Version 2)
Quarter: 2022Q3

REPORT INFORMATION
  Report Type: Other
  Country: US (occurrence: US)
  Receive Date: 20210820
  Receipt Date: 20220923
  Transmission Date: 20221026
  Serious: Yes (Other)
  Sender: FDA-Public Use
  Company Number: US-APOTEX-2021AP038394

PATIENT
  Age: 63 Year
  Sex: Male

DRUGS (1)
  1. RANITIDINE HYDROCHLORIDE [Suspect]
     Active Substance: RANITIDINE HYDROCHLORIDE
     Indication: Gastrooesophageal reflux disease
     Dosage: UNK UNK, QD
     Route: 048
     Dates: start: 200501, end: 201910

REACTIONS (3)
  - Lung neoplasm malignant [Unknown]
  - Lymphoma [Unknown]
  - Head and neck cancer [Unknown]

NARRATIVE: CASE EVENT DATE: 20160101
